FAERS Safety Report 19445954 (Version 1)
Quarter: 2021Q2

REPORT INFORMATION
  Report Type: Spontaneous
  Country: US (occurrence: US)
  Receive Date: 20210622
  Receipt Date: 20210622
  Transmission Date: 20210717
  Serious: Yes (Other)
  Sender: FDA-Public Use
  Company Number: US-GLAXOSMITHKLINE-US2021GSK132794

PATIENT
  Sex: Male

DRUGS (14)
  1. ZANTAC [Suspect]
     Active Substance: RANITIDINE HYDROCHLORIDE
     Indication: DYSPEPSIA
     Dosage: 75 MG, MORE THAN ONCE A DAY
     Route: 065
     Dates: start: 198301, end: 201001
  2. ZANTAC [Suspect]
     Active Substance: RANITIDINE HYDROCHLORIDE
     Indication: DYSPEPSIA
     Dosage: 75 MG BOTH, MORE THAN ONCE A DAY
     Route: 065
     Dates: start: 198301, end: 201001
  3. ZANTAC [Suspect]
     Active Substance: RANITIDINE HYDROCHLORIDE
     Dosage: 150 MG, MORE THAN ONCE A DAY
     Route: 065
     Dates: start: 198301, end: 201001
  4. RANITIDINE CAPSULE [Suspect]
     Active Substance: RANITIDINE
     Indication: DYSPEPSIA
     Dosage: 75 MG BOTH, MORE THAN ONCE A DAY
     Route: 065
     Dates: start: 198301, end: 201001
  5. RANITIDINE CAPSULE [Suspect]
     Active Substance: RANITIDINE
     Dosage: 150 MG, MORE THAN ONCE A DAY
     Route: 065
     Dates: start: 198301, end: 201001
  6. RANITIDINE HYDROCHLORIDE. [Suspect]
     Active Substance: RANITIDINE HYDROCHLORIDE
     Dosage: 150 MG, MORE THAN ONCE A DAY
     Route: 065
     Dates: start: 198301, end: 201001
  7. RANITIDINE HYDROCHLORIDE. [Suspect]
     Active Substance: RANITIDINE HYDROCHLORIDE
     Dosage: 150 MG, MORE THAN ONCE A DAY
     Route: 065
     Dates: start: 198301, end: 201001
  8. RANITIDINE HYDROCHLORIDE. [Suspect]
     Active Substance: RANITIDINE HYDROCHLORIDE
     Indication: DYSPEPSIA
     Dosage: 75 MG, MORE THAN ONCE A DAY
     Route: 065
     Dates: start: 198301, end: 201001
  9. ZANTAC [Suspect]
     Active Substance: RANITIDINE HYDROCHLORIDE
     Indication: DYSPEPSIA
     Dosage: 75 MG, MORE THAN ONCE A DAY
     Route: 065
     Dates: start: 198301, end: 201001
  10. ZANTAC [Suspect]
     Active Substance: RANITIDINE HYDROCHLORIDE
     Dosage: 150 MG, MORE THAN ONCE A DAY
     Route: 065
     Dates: start: 198301, end: 201001
  11. ZANTAC [Suspect]
     Active Substance: RANITIDINE HYDROCHLORIDE
     Dosage: 150 MG, MORE THAN ONCE A DAY
     Route: 065
     Dates: start: 198301, end: 201001
  12. RANITIDINE HYDROCHLORIDE. [Suspect]
     Active Substance: RANITIDINE HYDROCHLORIDE
     Indication: DYSPEPSIA
     Dosage: 75 MG, MORE THAN ONCE A DAY
     Route: 065
     Dates: start: 198301, end: 201001
  13. RANITIDINE. [Suspect]
     Active Substance: RANITIDINE
     Indication: DYSPEPSIA
     Dosage: 75 MG, MORE THAN ONCE A DAY
     Route: 065
     Dates: start: 198301, end: 201001
  14. RANITIDINE. [Suspect]
     Active Substance: RANITIDINE
     Dosage: 150 MG, MORE THAN ONCE A DAY
     Route: 065
     Dates: start: 198301, end: 201001

REACTIONS (2)
  - Skin cancer [Unknown]
  - Prostate cancer [Unknown]
